FAERS Safety Report 20232001 (Version 4)
Quarter: 2022Q2

REPORT INFORMATION
  Report Type: Spontaneous
  Country: US (occurrence: US)
  Receive Date: 20211227
  Receipt Date: 20220629
  Transmission Date: 20220721
  Serious: Yes (Other)
  Sender: FDA-Public Use
  Company Number: US-EyePoint Pharmaceuticals, Inc.-US-EYP-21-00140

PATIENT
  Age: 68 Year
  Sex: Female

DRUGS (4)
  1. DEXYCU [Suspect]
     Active Substance: DEXAMETHASONE
     Indication: Post procedural inflammation
     Dosage: IN THE LEFT EYE/OS
     Route: 031
     Dates: start: 20211027, end: 20211027
  2. DEXYCU [Suspect]
     Active Substance: DEXAMETHASONE
     Dosage: IN THE RIGHT EYE/OD
     Route: 031
     Dates: start: 20210929, end: 20210929
  3. OFLOXACIN [Concomitant]
     Active Substance: OFLOXACIN
     Indication: Product used for unknown indication
     Dosage: IN BOTH EYES/OU ONE WEEK POSTOPERATIVE
     Route: 031
  4. MOXIFLOXACIN [Concomitant]
     Active Substance: MOXIFLOXACIN
     Indication: Product used for unknown indication
     Dosage: 1 MG / 0.1 ML IN BOTH EYES/OU
     Route: 031

REACTIONS (2)
  - Device breakage [Recovered/Resolved]
  - Device breakage [Recovered/Resolved]

NARRATIVE: CASE EVENT DATE: 20211028
